FAERS Safety Report 25485021 (Version 1)
Quarter: 2025Q2

REPORT INFORMATION
  Report Type: Spontaneous
  Country: ES (occurrence: ES)
  Receive Date: 20250626
  Receipt Date: 20250626
  Transmission Date: 20250717
  Serious: Yes (Other)
  Sender: RANBAXY
  Company Number: ES-AEMPS-1647087

PATIENT
  Age: 65 Year
  Sex: Male

DRUGS (8)
  1. CITALOPRAM [Suspect]
     Active Substance: CITALOPRAM
     Indication: Anxiety
     Dosage: 20 MILLIGRAM, QD
     Route: 048
     Dates: start: 20120130, end: 20241022
  2. CITALOPRAM [Suspect]
     Active Substance: CITALOPRAM
     Dosage: 10 MILLIGRAM, QD
     Route: 048
     Dates: start: 20241022, end: 20250219
  3. AMLODIPINE CINFA [Concomitant]
     Indication: Product used for unknown indication
     Dosage: 5 MILLIGRAM, QD
     Route: 048
     Dates: start: 20161003
  4. ENALAPRIL/HIDROCLOROTIAZIDE CINFA [Concomitant]
     Indication: Product used for unknown indication
     Dosage: 1 DOSAGE FORM, QD
     Route: 048
     Dates: start: 20161003
  5. ALBUTEROL SULFATE [Concomitant]
     Active Substance: ALBUTEROL SULFATE
     Indication: Product used for unknown indication
     Dosage: 1 DOSAGE FORM, TID
     Route: 055
     Dates: start: 20120315
  6. LORAZEPAM [Concomitant]
     Active Substance: LORAZEPAM
     Indication: Product used for unknown indication
     Dosage: GUIDELINE: BREAKFAST 1 TABLET OF 1 MG, LUNCH HALF A TABLET OF 1 MG, DINNER 1 TABLET OF 1 MG
     Route: 048
     Dates: start: 20120124
  7. TOPAMAX [Concomitant]
     Active Substance: TOPIRAMATE
     Indication: Product used for unknown indication
     Dosage: 100 MILLIGRAM, QD
     Route: 048
     Dates: start: 20120104
  8. FOSTER [Concomitant]
     Active Substance: BECLOMETHASONE\FORMOTEROL
     Indication: Product used for unknown indication
     Dosage: 2 DOSAGE FORM, BID
     Route: 055
     Dates: start: 20180411

REACTIONS (4)
  - Male sexual dysfunction [Recovered/Resolved]
  - Erectile dysfunction [Recovered/Resolved]
  - Anorgasmia [Recovered/Resolved]
  - Ejaculation delayed [Recovered/Resolved]

NARRATIVE: CASE EVENT DATE: 20211025
